FAERS Safety Report 13556793 (Version 1)
Quarter: 2017Q2

REPORT INFORMATION
  Report Type: Spontaneous
  Country: US (occurrence: US)
  Receive Date: 20170517
  Receipt Date: 20170517
  Transmission Date: 20170830
  Serious: No
  Sender: FDA-Public Use
  Company Number: US-SA-2017SA075090

PATIENT
  Sex: Female

DRUGS (6)
  1. TOUJEO [Suspect]
     Active Substance: INSULIN GLARGINE
     Indication: TYPE 2 DIABETES MELLITUS
     Dosage: DOSE:10 UNIT(S)
     Route: 065
     Dates: start: 201703
  2. TOUJEO [Suspect]
     Active Substance: INSULIN GLARGINE
     Indication: TYPE 2 DIABETES MELLITUS
     Route: 065
     Dates: start: 2017
  3. SOLOSTAR [Concomitant]
     Active Substance: DEVICE
     Dates: start: 2017
  4. LANTUS SOLOSTAR [Concomitant]
     Active Substance: INSULIN GLARGINE
     Dates: start: 201702
  5. SOLOSTAR [Concomitant]
     Active Substance: DEVICE
     Dates: start: 201703
  6. SOLOSTAR [Concomitant]
     Active Substance: DEVICE
     Dates: start: 201702

REACTIONS (5)
  - Hyperhidrosis [Recovered/Resolved]
  - Injection site mass [Unknown]
  - Hot flush [Recovered/Resolved]
  - Injection site discolouration [Unknown]
  - Injection site bruising [Unknown]

NARRATIVE: CASE EVENT DATE: 2017
